FAERS Safety Report 7606880-0 (Version None)
Quarter: 2011Q3

REPORT INFORMATION
  Report Type: 
  Country: None (occurrence: None)
  Receive Date: 20110713
  Receipt Date: 20110705
  Transmission Date: 20111222
  Serious: Yes (Other)
  Sender: FDA-Public Use
  Company Number: FR-GLAXOSMITHKLINE-B0731730A

PATIENT
  Age: 60 Year
  Sex: Female

DRUGS (7)
  1. PROMACTA [Suspect]
     Indication: IDIOPATHIC THROMBOCYTOPENIC PURPURA
     Dosage: 50MG PER DAY
     Route: 048
     Dates: start: 20110501
  2. NEXIUM [Concomitant]
  3. METFORMIN HCL [Concomitant]
  4. APROVEL [Concomitant]
  5. ACETAMINOPHEN [Concomitant]
  6. CALCIUM/VITAMIN D [Concomitant]
  7. INSULINE [Concomitant]

REACTIONS (3)
  - MYALGIA [None]
  - ARTHRALGIA [None]
  - TRANSAMINASES INCREASED [None]
